FAERS Safety Report 4875166-X (Version None)
Quarter: 2006Q1

REPORT INFORMATION
  Report Type: 
  Country: None (occurrence: None)
  Receive Date: 20060104
  Receipt Date: 20051222
  Transmission Date: 20060701
  Serious: Yes (Disabling, Other)
  Sender: FDA-Public Use
  Company Number: 2005157927

PATIENT
  Sex: Female
  Weight: 70.3075 kg

DRUGS (12)
  1. CELEBREX [Suspect]
     Indication: RHEUMATOID ARTHRITIS
     Dosage: 400 MG (200 MG, 2 IN 1 D),
  2. METHOTREXATE [Concomitant]
  3. FOLIC ACID [Concomitant]
  4. PREGABALIN (PREGABALIN) [Concomitant]
  5. LIPITOR [Concomitant]
  6. PREVACID [Concomitant]
  7. ATACAND [Concomitant]
  8. TENORMIN [Concomitant]
  9. PAXIL [Concomitant]
  10. PREMARIN [Concomitant]
  11. ELAVIL [Concomitant]
  12. TEMAZEPAM [Concomitant]

REACTIONS (3)
  - BLADDER DISORDER [None]
  - DIABETES MELLITUS [None]
  - URINARY INCONTINENCE [None]
